FAERS Safety Report 16381105 (Version 1)
Quarter: 2019Q2

REPORT INFORMATION
  Report Type: Spontaneous
  Country: US (occurrence: US)
  Receive Date: 20190602
  Receipt Date: 20190602
  Transmission Date: 20190711
  Serious: Yes (Death, Other)
  Sender: FDA-Public Use
  Company Number: US-JNJFOC-20190531094

PATIENT
  Sex: Female

DRUGS (1)
  1. JOHNSONS BABY BABY POWDER UNSPECIFIED (ZINC OXIDE) [Suspect]
     Active Substance: ZINC OXIDE
     Indication: PRODUCT USED FOR UNKNOWN INDICATION
     Dosage: EVERY DAY
     Route: 061

REACTIONS (1)
  - Neoplasm malignant [Fatal]
